FAERS Safety Report 9228381 (Version 2)
Quarter: 2013Q2

REPORT INFORMATION
  Report Type: Report from Study
  Country: FR (occurrence: FR)
  Receive Date: 20130412
  Receipt Date: 20130615
  Transmission Date: 20140414
  Serious: Yes (Death, Other)
  Sender: FDA-Public Use
  Company Number: FR-ROCHE-1212076

PATIENT
  Age: 81 Year
  Sex: Female

DRUGS (2)
  1. ALTEPLASE [Suspect]
     Indication: BASILAR ARTERY THROMBOSIS
     Route: 013
  2. HEPARIN [Suspect]
     Indication: BASILAR ARTERY THROMBOSIS
     Route: 042

REACTIONS (2)
  - Death [Fatal]
  - Drug ineffective [Unknown]
